FAERS Safety Report 4451800-3 (Version None)
Quarter: 2004Q3

REPORT INFORMATION
  Report Type: 
  Country: None (occurrence: None)
  Receive Date: 20040813
  Receipt Date: 20040420
  Transmission Date: 20050211
  Serious: No
  Sender: FDA-Public Use
  Company Number: S04-USA-03562-01

PATIENT
  Age: 78 Year
  Sex: Female

DRUGS (8)
  1. NAMENDA [Suspect]
     Indication: VASCULAR DEMENTIA
     Dosage: 5 MG QD PO
     Route: 048
     Dates: start: 20040301, end: 20040419
  2. REMINYL [Concomitant]
  3. INSULIN [Concomitant]
  4. SYNTHROID [Concomitant]
  5. BLOOD PRESSURE MEDICATIONS (NOS) [Concomitant]
  6. LIPITOR [Concomitant]
  7. ASPIRIN [Concomitant]
  8. MULTIVITAMIN [Concomitant]

REACTIONS (4)
  - AGGRESSION [None]
  - AGITATION [None]
  - ANGER [None]
  - DEPRESSION [None]
